FAERS Safety Report 26148105 (Version 1)
Quarter: 2025Q4

REPORT INFORMATION
  Report Type: Spontaneous
  Country: CN (occurrence: CN)
  Receive Date: 20251212
  Receipt Date: 20251212
  Transmission Date: 20260118
  Serious: Yes (Hospitalization, Disabling)
  Sender: DIZAL (JIANGSU) PHARMACEUTICAL CO., LTD.
  Company Number: CN-Dizal (Jiangsu) Pharmaceutical Co., Ltd.-2190398

PATIENT
  Age: 68 Year
  Sex: Female
  Weight: 60 kg

DRUGS (1)
  1. SUNVOZERTINIB [Suspect]
     Active Substance: SUNVOZERTINIB
     Indication: Lung neoplasm malignant
     Dates: start: 20250801, end: 20251121

REACTIONS (2)
  - Hepatic function abnormal [Recovering/Resolving]
  - Urinary tract infection [Unknown]

NARRATIVE: CASE EVENT DATE: 20251121
